FAERS Safety Report 6804171-9 (Version None)
Quarter: 2010Q2

REPORT INFORMATION
  Report Type: 
  Country: None (occurrence: None)
  Receive Date: 20100628
  Receipt Date: 20070212
  Transmission Date: 20101027
  Serious: Yes (Other)
  Sender: FDA-Public Use
  Company Number: US-PFIZER INC-2007012606

PATIENT
  Sex: Male
  Weight: 68 kg

DRUGS (3)
  1. SUTENT [Suspect]
     Indication: RENAL CELL CARCINOMA
     Dates: start: 20061201
  2. OXYCODONE HCL AND ACETAMINOPHEN [Concomitant]
  3. OXYCODONE HCL [Concomitant]

REACTIONS (2)
  - HAEMATURIA [None]
  - RED BLOOD CELL COUNT DECREASED [None]
